FAERS Safety Report 16495898 (Version 1)
Quarter: 2019Q2

REPORT INFORMATION
  Report Type: Spontaneous
  Country: US (occurrence: US)
  Receive Date: 20190628
  Receipt Date: 20190628
  Transmission Date: 20190711
  Serious: No
  Sender: FDA-Public Use
  Company Number: US-CVS PREMIER BRANDS OF AMERICA INC.-2069776

PATIENT
  Age: 31 Year
  Sex: Female

DRUGS (3)
  1. SALICYLIC ACID. [Suspect]
     Active Substance: SALICYLIC ACID
     Route: 003
     Dates: start: 20190608, end: 20190609
  2. AMLODIPINE [Concomitant]
     Active Substance: AMLODIPINE BESYLATE
  3. SILVER SULFADIAZENE [Concomitant]
     Active Substance: SILVER SULFADIAZINE

REACTIONS (1)
  - Thermal burn [Not Recovered/Not Resolved]

NARRATIVE: CASE EVENT DATE: 20190610
